FAERS Safety Report 12737398 (Version 2)
Quarter: 2016Q4

REPORT INFORMATION
  Report Type: Spontaneous
  Country: US (occurrence: US)
  Receive Date: 20160913
  Receipt Date: 20161014
  Transmission Date: 20170207
  Serious: Yes (Other)
  Sender: FDA-Public Use
  Company Number: US-BAYER-2016-175015

PATIENT
  Age: 36 Year
  Sex: Female

DRUGS (1)
  1. MIRENA [Suspect]
     Active Substance: LEVONORGESTREL
     Dosage: 20 MCG/24HR, CONT
     Route: 015
     Dates: start: 20130531, end: 20160818

REACTIONS (9)
  - Procedural pain [None]
  - Alopecia [None]
  - Menorrhagia [None]
  - Procedural haemorrhage [None]
  - Muscular weakness [None]
  - Night sweats [None]
  - Depression [None]
  - Anxiety [None]
  - Chemical poisoning [None]

NARRATIVE: CASE EVENT DATE: 20140526
